FAERS Safety Report 15154960 (Version 6)
Quarter: 2018Q3

REPORT INFORMATION
  Report Type: Spontaneous
  Country: US (occurrence: US)
  Receive Date: 20180717
  Receipt Date: 20180927
  Transmission Date: 20181010
  Serious: Yes (Other)
  Sender: FDA-Public Use
  Company Number: US-ELI_LILLY_AND_COMPANY-US201807002640

PATIENT
  Age: 58 Year
  Sex: Female

DRUGS (12)
  1. ADCIRCA [Suspect]
     Active Substance: TADALAFIL
     Indication: PULMONARY HYPERTENSION
     Dosage: 40 MG, DAILY
     Route: 065
     Dates: start: 20171017
  2. ADCIRCA [Suspect]
     Active Substance: TADALAFIL
     Dosage: 20 MG, BID
     Route: 065
  3. ADCIRCA [Suspect]
     Active Substance: TADALAFIL
     Dosage: 40 MG, DAILY
     Route: 065
  4. ADCIRCA [Suspect]
     Active Substance: TADALAFIL
     Dosage: 20 MG, TID
     Route: 065
  5. REMODULIN [Suspect]
     Active Substance: TREPROSTINIL
     Dosage: 0.056 ML, EVERY HOUR
     Route: 058
     Dates: start: 20180511
  6. REMODULIN [Suspect]
     Active Substance: TREPROSTINIL
     Dosage: 27.25 NG, ONCE PER MINUTE
     Route: 058
  7. REMODULIN [Suspect]
     Active Substance: TREPROSTINIL
     Dosage: 28.25 NG, UNKNOWN
     Route: 058
  8. REMODULIN [Suspect]
     Active Substance: TREPROSTINIL
     Dosage: 64.05 UG, PER SECOND
     Route: 058
  9. AMBRISENTAN [Suspect]
     Active Substance: AMBRISENTAN
     Indication: PULMONARY HYPERTENSION
     Dosage: 10 MG, DAILY
     Route: 065
     Dates: start: 20171017
  10. REMODULIN [Suspect]
     Active Substance: TREPROSTINIL
     Dosage: 79.6 UG/KG, EVERY SECOND
     Route: 058
     Dates: start: 20180511
  11. AMBRISENTAN [Suspect]
     Active Substance: AMBRISENTAN
     Dosage: 5 MG, DAILY
     Route: 065
     Dates: start: 20171018
  12. REMODULIN [Suspect]
     Active Substance: TREPROSTINIL
     Indication: PULMONARY ARTERIAL HYPERTENSION
     Dosage: 15.25 NG, ONCE PER MINUTE
     Route: 058
     Dates: start: 20180511

REACTIONS (10)
  - Pain [Not Recovered/Not Resolved]
  - Headache [Unknown]
  - Syncope [Unknown]
  - Dyspnoea [Not Recovered/Not Resolved]
  - Skin infection [Recovered/Resolved]
  - Nausea [Recovered/Resolved]
  - Pain in extremity [Unknown]
  - Pain in jaw [Unknown]
  - Asthenia [Recovering/Resolving]
  - Peripheral swelling [Not Recovered/Not Resolved]

NARRATIVE: CASE EVENT DATE: 201806
